FAERS Safety Report 25756046 (Version 2)
Quarter: 2025Q3

REPORT INFORMATION
  Report Type: Spontaneous
  Country: US (occurrence: US)
  Receive Date: 20250903
  Receipt Date: 20250908
  Transmission Date: 20251020
  Serious: Yes (Life-Threatening, Other)
  Sender: PFIZER
  Company Number: US-PFIZER INC-PV202500105825

PATIENT
  Age: 38 Year
  Sex: Female

DRUGS (2)
  1. SUCCINYLCHOLINE CHLORIDE [Suspect]
     Active Substance: SUCCINYLCHOLINE CHLORIDE
     Indication: Cystinuria
  2. TIOPRONIN [Concomitant]
     Active Substance: TIOPRONIN
     Indication: Cystinuria

REACTIONS (2)
  - Paralysis [Unknown]
  - Therapeutic product effect prolonged [Unknown]
